FAERS Safety Report 7139188-0 (Version None)
Quarter: 2010Q4

REPORT INFORMATION
  Report Type: 
  Country: None (occurrence: None)
  Receive Date: 20101206
  Receipt Date: 20101201
  Transmission Date: 20110411
  Serious: Yes (Death, Hospitalization, Other)
  Sender: FDA-Public Use
  Company Number: US-CELGENEUS-163-21880-10120224

PATIENT
  Age: 75 Year
  Sex: Male

DRUGS (24)
  1. REVLIMID [Suspect]
     Indication: MYELOFIBROSIS
     Route: 048
     Dates: start: 20090301
  2. REVLIMID [Suspect]
     Dosage: 5MG ALTERNATING WITH 10MG
     Route: 048
     Dates: start: 20090501
  3. REVLIMID [Suspect]
     Route: 048
     Dates: start: 20090501
  4. REVLIMID [Suspect]
     Route: 048
     Dates: start: 20090821, end: 20091123
  5. REVLIMID [Suspect]
     Route: 048
     Dates: start: 20091218, end: 20100101
  6. PREDNISONE [Concomitant]
     Indication: MYELOFIBROSIS
     Route: 048
     Dates: start: 20090301
  7. PROCRIT [Concomitant]
     Route: 065
  8. PROCRIT [Concomitant]
     Dosage: 60,000 UNITS
     Route: 065
     Dates: start: 20091023
  9. ALLOPURINOL [Concomitant]
     Route: 065
  10. NORVASC [Concomitant]
     Route: 065
  11. TERAZOSIN HCL [Concomitant]
     Route: 065
  12. LASIX [Concomitant]
     Route: 065
  13. GLIPIZIDE [Concomitant]
     Route: 065
  14. GABAPENTIN [Concomitant]
     Route: 065
  15. ZOCOR [Concomitant]
     Route: 065
  16. M.V.I. [Concomitant]
     Route: 065
  17. RED BLOOD CELLS [Concomitant]
     Dosage: 2 UNITS
     Route: 051
     Dates: start: 20100922
  18. ASPIRIN [Concomitant]
     Route: 065
  19. ASPIRIN [Concomitant]
     Route: 065
     Dates: start: 20091023
  20. PRILOSEC [Concomitant]
     Route: 065
  21. NITROGLYCERIN [Concomitant]
     Route: 060
  22. VICODIN [Concomitant]
     Route: 065
  23. INTERFERON ALFA [Concomitant]
     Route: 065
  24. WHOLE BLOOD [Concomitant]
     Route: 051
     Dates: start: 20100201

REACTIONS (6)
  - ANGINA PECTORIS [None]
  - CARDIAC FAILURE CONGESTIVE [None]
  - CLOSTRIDIAL INFECTION [None]
  - DEATH [None]
  - HAEMOGLOBIN DECREASED [None]
  - PANCYTOPENIA [None]
